FAERS Safety Report 8331844 (Version 4)
Quarter: 2012Q4

REPORT INFORMATION
  Report Type: 
  Country: US (occurrence: US)
  Receive Date: 20120111
  Receipt Date: 20120904
  Transmission Date: 20130627
  Serious: No
  Sender: FDA-Public Use
  Company Number: US-AMGEN-USASP2011065182

PATIENT
  Age: 62 Year
  Sex: Female
  Weight: 80.27 kg

DRUGS (7)
  1. ENBREL [Suspect]
     Indication: RHEUMATOID ARTHRITIS
     Dosage: 50 mg, qwk
     Route: 058
     Dates: start: 201101, end: 201207
  2. HYDROCHLOROTHIAZIDE [Concomitant]
     Dosage: 25 mg, qd
     Route: 048
  3. GLYBURIDE W/METFORMIN [Concomitant]
     Dosage: 100 mg, qd
     Route: 048
  4. COZAAR [Concomitant]
     Dosage: 25 mg, qd
     Route: 048
  5. ASA [Concomitant]
     Dosage: 81 mg, qd
     Route: 048
  6. METHOTREXATE [Concomitant]
     Dosage: 10 mg, qwk
     Route: 048
  7. FOLIC ACID [Concomitant]
     Dosage: 1 mg, qd
     Route: 048

REACTIONS (8)
  - Contusion [Not Recovered/Not Resolved]
  - Fall [Not Recovered/Not Resolved]
  - Pain in extremity [Not Recovered/Not Resolved]
  - Arthralgia [Not Recovered/Not Resolved]
  - Cough [Not Recovered/Not Resolved]
  - Nasopharyngitis [Not Recovered/Not Resolved]
  - Injection site pain [Not Recovered/Not Resolved]
  - Upper respiratory tract infection [Not Recovered/Not Resolved]
